FAERS Safety Report 25804146 (Version 1)
Quarter: 2025Q3

REPORT INFORMATION
  Report Type: Spontaneous
  Country: CN (occurrence: CN)
  Receive Date: 20250915
  Receipt Date: 20250915
  Transmission Date: 20251021
  Serious: Yes (Disabling)
  Sender: MYLAN
  Company Number: CN-MYLANLABS-2025M1077622

PATIENT
  Age: 55 Year
  Sex: Female
  Weight: 45 kg

DRUGS (20)
  1. LYRICA [Suspect]
     Active Substance: PREGABALIN
     Indication: Pain
     Dosage: 75 MILLIGRAM, BID
     Dates: start: 20250820, end: 20250908
  2. LYRICA [Suspect]
     Active Substance: PREGABALIN
     Indication: Neuralgia
     Dosage: 75 MILLIGRAM, BID
     Route: 048
     Dates: start: 20250820, end: 20250908
  3. LYRICA [Suspect]
     Active Substance: PREGABALIN
     Dosage: 75 MILLIGRAM, BID
     Route: 048
     Dates: start: 20250820, end: 20250908
  4. LYRICA [Suspect]
     Active Substance: PREGABALIN
     Dosage: 75 MILLIGRAM, BID
     Dates: start: 20250820, end: 20250908
  5. LORAZEPAM [Suspect]
     Active Substance: LORAZEPAM
     Indication: Anxiety
     Dosage: 0.5 MILLIGRAM, PM (QN ONCE NIGHT)
     Dates: start: 20250812, end: 20250908
  6. LORAZEPAM [Suspect]
     Active Substance: LORAZEPAM
     Indication: Depression
     Dosage: 0.5 MILLIGRAM, PM (QN ONCE NIGHT)
     Route: 048
     Dates: start: 20250812, end: 20250908
  7. LORAZEPAM [Suspect]
     Active Substance: LORAZEPAM
     Dosage: 0.5 MILLIGRAM, PM (QN ONCE NIGHT)
     Route: 048
     Dates: start: 20250812, end: 20250908
  8. LORAZEPAM [Suspect]
     Active Substance: LORAZEPAM
     Dosage: 0.5 MILLIGRAM, PM (QN ONCE NIGHT)
     Dates: start: 20250812, end: 20250908
  9. TOLUDESVENLAFAXINE HYDROCHLORIDE [Suspect]
     Active Substance: TOLUDESVENLAFAXINE HYDROCHLORIDE
     Indication: Anxiety
     Dosage: 40 MILLIGRAM, QD
     Dates: start: 20250813
  10. TOLUDESVENLAFAXINE HYDROCHLORIDE [Suspect]
     Active Substance: TOLUDESVENLAFAXINE HYDROCHLORIDE
     Indication: Depression
     Dosage: 40 MILLIGRAM, QD
     Dates: start: 20250813
  11. TOLUDESVENLAFAXINE HYDROCHLORIDE [Suspect]
     Active Substance: TOLUDESVENLAFAXINE HYDROCHLORIDE
     Dosage: 40 MILLIGRAM, QD
     Route: 048
     Dates: start: 20250813
  12. TOLUDESVENLAFAXINE HYDROCHLORIDE [Suspect]
     Active Substance: TOLUDESVENLAFAXINE HYDROCHLORIDE
     Dosage: 40 MILLIGRAM, QD
     Route: 048
     Dates: start: 20250813
  13. TOLUDESVENLAFAXINE HYDROCHLORIDE [Suspect]
     Active Substance: TOLUDESVENLAFAXINE HYDROCHLORIDE
     Dosage: 80 MILLIGRAM, QD
     Dates: start: 20250815, end: 20250908
  14. TOLUDESVENLAFAXINE HYDROCHLORIDE [Suspect]
     Active Substance: TOLUDESVENLAFAXINE HYDROCHLORIDE
     Dosage: 80 MILLIGRAM, QD
     Dates: start: 20250815, end: 20250908
  15. TOLUDESVENLAFAXINE HYDROCHLORIDE [Suspect]
     Active Substance: TOLUDESVENLAFAXINE HYDROCHLORIDE
     Dosage: 80 MILLIGRAM, QD
     Route: 048
     Dates: start: 20250815, end: 20250908
  16. TOLUDESVENLAFAXINE HYDROCHLORIDE [Suspect]
     Active Substance: TOLUDESVENLAFAXINE HYDROCHLORIDE
     Dosage: 80 MILLIGRAM, QD
     Route: 048
     Dates: start: 20250815, end: 20250908
  17. ZOPICLONE [Concomitant]
     Active Substance: ZOPICLONE
     Indication: Depression
     Dosage: 7.5 MILLIGRAM, PM (QN ONCE NIGHT)
     Dates: start: 20250812, end: 20250908
  18. ZOPICLONE [Concomitant]
     Active Substance: ZOPICLONE
     Indication: Anxiety
     Dosage: 7.5 MILLIGRAM, PM (QN ONCE NIGHT)
     Route: 048
     Dates: start: 20250812, end: 20250908
  19. ZOPICLONE [Concomitant]
     Active Substance: ZOPICLONE
     Dosage: 7.5 MILLIGRAM, PM (QN ONCE NIGHT)
     Route: 048
     Dates: start: 20250812, end: 20250908
  20. ZOPICLONE [Concomitant]
     Active Substance: ZOPICLONE
     Dosage: 7.5 MILLIGRAM, PM (QN ONCE NIGHT)
     Dates: start: 20250812, end: 20250908

REACTIONS (1)
  - Liver injury [Recovered/Resolved]

NARRATIVE: CASE EVENT DATE: 20250827
